FAERS Safety Report 6307373-3 (Version None)
Quarter: 2009Q3

REPORT INFORMATION
  Report Type: 
  Country: None (occurrence: None)
  Receive Date: 20090813
  Receipt Date: 20090810
  Transmission Date: 20100115
  Serious: Yes (Death)
  Sender: FDA-Public Use
  Company Number: JP-JNJFOC-20090803484

PATIENT
  Age: 83 Year
  Sex: Male

DRUGS (8)
  1. DUROTEP MT PATCH [Suspect]
     Route: 062
  2. DUROTEP MT PATCH [Suspect]
     Indication: CANCER PAIN
     Route: 062
  3. MODACIN [Suspect]
     Indication: SEPSIS
     Route: 041
  4. PRODIF [Suspect]
     Indication: SEPSIS
     Route: 041
  5. TARGOCID [Suspect]
     Indication: SEPSIS
     Route: 041
  6. AMPICILLIN [Concomitant]
     Indication: SEPSIS
     Route: 041
  7. OXINORM (OXYCODONE HYDROCHLORIDE) [Concomitant]
     Indication: CANCER PAIN
     Route: 048
  8. DECADRON [Concomitant]
     Indication: MALAISE
     Route: 041

REACTIONS (8)
  - ALTERED STATE OF CONSCIOUSNESS [None]
  - CACHEXIA [None]
  - DELIRIUM [None]
  - HEPATIC FAILURE [None]
  - HYPERTHERMIA [None]
  - NEOPLASM MALIGNANT [None]
  - PYELONEPHRITIS [None]
  - SEPSIS [None]
